FAERS Safety Report 16918079 (Version 2)
Quarter: 2019Q4

REPORT INFORMATION
  Report Type: Spontaneous
  Country: JP (occurrence: JP)
  Receive Date: 20191015
  Receipt Date: 20191016
  Transmission Date: 20200122
  Serious: Yes (Death, Other)
  Sender: FDA-Public Use
  Company Number: JP-ROCHE-2435934

PATIENT
  Age: 59 Year
  Sex: Male

DRUGS (2)
  1. CELLCEPT [Suspect]
     Active Substance: MYCOPHENOLATE MOFETIL\MYCOPHENOLATE MOFETIL HYDROCHLORIDE
     Indication: CRYOGLOBULINAEMIA
     Dosage: DOSAGE IS UNCERTAIN.
     Route: 048
  2. PREDNISOLONE. [Concomitant]
     Active Substance: PREDNISOLONE
     Indication: CRYOGLOBULINAEMIA
     Dosage: DOSE INTERVAL UNCERTAINTY
     Route: 048

REACTIONS (5)
  - Anaemia [Unknown]
  - Renal impairment [Unknown]
  - Diffuse large B-cell lymphoma [Fatal]
  - Off label use [Unknown]
  - Intentional product use issue [Unknown]
